FAERS Safety Report 17817084 (Version 1)
Quarter: 2020Q2

REPORT INFORMATION
  Report Type: Spontaneous
  Country: BE (occurrence: BE)
  Receive Date: 20200522
  Receipt Date: 20200522
  Transmission Date: 20200714
  Serious: Yes (Other)
  Sender: FDA-Public Use
  Company Number: BE-AZURITY PHARMACEUTICALS, INC.-2020SIL00028

PATIENT
  Age: 13 Year
  Sex: Female

DRUGS (16)
  1. VINCRISTINE [Concomitant]
     Active Substance: VINCRISTINE
     Dosage: 10.16 MG/M2 (TOTAL)
     Route: 065
  2. METHOTREXATE. [Suspect]
     Active Substance: METHOTREXATE
     Dosage: 20 G/M2 (TOTAL)
     Route: 042
  3. DEXAMETHASONE. [Concomitant]
     Active Substance: DEXAMETHASONE
     Dosage: 252 MG/M2 (TOTAL)
     Route: 065
  4. METHYLPREDNISOLONE. [Concomitant]
     Active Substance: METHYLPREDNISOLONE
     Dosage: 1 G/M2, 1X/DAY
  5. CYCLOPHOSPHAMIDE. [Suspect]
     Active Substance: CYCLOPHOSPHAMIDE
     Indication: ACUTE LYMPHOCYTIC LEUKAEMIA
     Dosage: UNK
  6. METHOTREXATE. [Suspect]
     Active Substance: METHOTREXATE
     Indication: ACUTE LYMPHOCYTIC LEUKAEMIA
     Dosage: 12 MG PER INJECTION (14 INJECTIONS)
     Route: 037
  7. 6-MERCAPTOPURINE [Concomitant]
     Active Substance: MERCAPTOPURINE
     Dosage: 2773 MG/M2 (TOTAL)
     Route: 065
  8. PREDNISOLONE. [Concomitant]
     Active Substance: PREDNISOLONE
     Dosage: 1620 MG/M2 (TOTAL)
     Route: 065
  9. DAUNORUBICINE [Concomitant]
     Active Substance: DAUNORUBICIN
     Dosage: 120 MG/M2 (TOTAL)
     Route: 065
  10. CYCLOPHOSPHAMIDE. [Suspect]
     Active Substance: CYCLOPHOSPHAMIDE
     Dosage: 2 G/M2 (TOTAL)
     Route: 065
  11. ADRIAMYCIN [Concomitant]
     Active Substance: DOXORUBICIN HYDROCHLORIDE
     Dosage: 50 MG/M2 (TOTAL)
     Route: 065
  12. PEG/L-ASPARAGINASE [Concomitant]
     Active Substance: PEGASPARGASE
     Dosage: 9898 U/M^2 (TOTAL)
     Route: 065
  13. MITOXANTRONE [Concomitant]
     Active Substance: MITOXANTRONE HYDROCHLORIDE
     Dosage: 8 MG/M2 (TOTAL)
     Route: 065
  14. CYTARABINE ARABINOSIDE [Suspect]
     Active Substance: CYTARABINE
     Indication: ACUTE LYMPHOCYTIC LEUKAEMIA
     Dosage: 15 MG PER INJECTION (14 INJECTIONS)
     Route: 037
  15. ETOPOSIDE. [Concomitant]
     Active Substance: ETOPOSIDE
     Dosage: 458 MG/M2 (TOTAL)
     Route: 065
  16. METHYLPREDNISOLONE. [Concomitant]
     Active Substance: METHYLPREDNISOLONE
     Dosage: 30 MG PER INJECTION (14 INJECTIONS)
     Route: 037

REACTIONS (1)
  - Myelopathy [Recovering/Resolving]
